FAERS Safety Report 10269957 (Version 1)
Quarter: 2014Q2

REPORT INFORMATION
  Report Type: Spontaneous
  Country: US (occurrence: None)
  Receive Date: 20140626
  Receipt Date: 20140626
  Transmission Date: 20141212
  Serious: Yes (Hospitalization, Other)
  Sender: FDA-Public Use
  Company Number: US-ZYDUS-003782

PATIENT
  Age: 39 Year
  Sex: Male

DRUGS (1)
  1. LAMOTRIGINE [Suspect]
     Indication: IDIOPATHIC GENERALISED EPILEPSY
     Dosage: 1.0DAYS

REACTIONS (1)
  - Lupus-like syndrome [None]
